FAERS Safety Report 26131068 (Version 1)
Quarter: 2025Q4

REPORT INFORMATION
  Report Type: Spontaneous
  Country: US (occurrence: None)
  Receive Date: 20251207
  Receipt Date: 20251207
  Transmission Date: 20260118
  Serious: Yes (Hospitalization)
  Sender: FDA-CTU
  Company Number: None

PATIENT
  Age: 3 Year
  Sex: Male
  Weight: 17.55 kg

DRUGS (1)
  1. DUPIXENT [Suspect]
     Active Substance: DUPILUMAB
     Indication: Eczema
     Dosage: 1 INJECTION(S) 28 DAYS SUBCUTANEOUS
     Route: 058
     Dates: start: 20251204, end: 20251204

REACTIONS (4)
  - Crying [None]
  - Diarrhoea [None]
  - Hypersensitivity [None]
  - Decreased appetite [None]

NARRATIVE: CASE EVENT DATE: 20251204
